FAERS Safety Report 6327334-8 (Version None)
Quarter: 2009Q3

REPORT INFORMATION
  Report Type: 
  Country: None (occurrence: None)
  Receive Date: 20090825
  Receipt Date: 20090813
  Transmission Date: 20100115
  Serious: Yes (Hospitalization)
  Sender: FDA-Public Use
  Company Number: FR-PFIZER INC-2009254365

PATIENT
  Age: 89 Year

DRUGS (8)
  1. ALDACTONE [Suspect]
     Indication: CARDIAC FAILURE
     Dosage: 25 MG, 1X/DAY
     Route: 048
     Dates: start: 20090601
  2. CARDENSIEL [Suspect]
     Indication: ATRIAL FIBRILLATION
     Dosage: 5 MG, 1X/DAY
     Route: 048
     Dates: start: 20090601
  3. NOCTRAN 10 [Suspect]
     Dosage: 10 MG, 1X/DAY
     Route: 048
     Dates: start: 20090601
  4. APROVEL [Suspect]
     Indication: ATRIAL FIBRILLATION
     Dosage: 75 MG, 1X/DAY
     Route: 048
     Dates: start: 20090601
  5. PREVISCAN [Concomitant]
     Indication: ATRIAL FIBRILLATION
     Dosage: 0.75 DF, 1X/DAY
     Route: 048
     Dates: start: 20090601
  6. MOPRAL [Concomitant]
     Indication: DUODENAL ULCER
     Dosage: 20 MG, 1X/DAY
     Route: 048
  7. ZOCOR [Concomitant]
     Indication: DYSLIPIDAEMIA
     Dosage: 20 MG, 1X/DAY
     Route: 048
  8. MOGADON [Concomitant]

REACTIONS (1)
  - FALL [None]
